FAERS Safety Report 16890160 (Version 3)
Quarter: 2019Q4

REPORT INFORMATION
  Report Type: Spontaneous
  Country: JP (occurrence: JP)
  Receive Date: 20191007
  Receipt Date: 20191028
  Transmission Date: 20200122
  Serious: Yes (Other)
  Sender: FDA-Public Use
  Company Number: JP-FERRINGPH-2019FE06264

PATIENT
  Age: 5 Decade
  Sex: Male

DRUGS (2)
  1. DESMOPRESSIN KYOWA [Suspect]
     Active Substance: DESMOPRESSIN
     Indication: DIABETES INSIPIDUS
     Dosage: UNK
     Route: 045
  2. MINIRINMELT [Suspect]
     Active Substance: DESMOPRESSIN ACETATE
     Indication: DIABETES INSIPIDUS
     Dosage: 90 ?G, DAILY
     Route: 048

REACTIONS (6)
  - Wrong technique in product usage process [Unknown]
  - Bladder disorder [Unknown]
  - Drug ineffective [Unknown]
  - Spinal stenosis [Unknown]
  - Anorectal disorder [Unknown]
  - Incontinence [Unknown]

NARRATIVE: CASE EVENT DATE: 2018
